FAERS Safety Report 8997678 (Version 1)
Quarter: 2013Q1

REPORT INFORMATION
  Report Type: Spontaneous
  Country: GB (occurrence: GB)
  Receive Date: 20130104
  Receipt Date: 20130104
  Transmission Date: 20140127
  Serious: Yes (Other)
  Sender: FDA-Public Use
  Company Number: GB-B.I. PHARMACEUTICALS,INC./RIDGEFIELD-2012-UK-01987UK

PATIENT
  Age: 77 Year
  Sex: Female
  Weight: 78 kg

DRUGS (12)
  1. LINAGLIPTIN [Suspect]
     Dates: start: 20121129
  2. AMLODIPINE [Concomitant]
     Dates: start: 20120831, end: 20121214
  3. ATORVASTATIN [Concomitant]
     Dates: start: 20120914, end: 20121207
  4. CARVEDILOL [Concomitant]
     Dates: start: 20120831, end: 20121214
  5. DOSULEPIN [Concomitant]
     Dates: start: 20120907
  6. E-45 [Concomitant]
     Dates: start: 20120907, end: 20121005
  7. FERROUS FUMARATE [Concomitant]
     Dates: start: 20121109, end: 20121207
  8. FERROUS FUMARATE [Concomitant]
     Dates: start: 20120914, end: 20121210
  9. METFORMIN [Concomitant]
     Dates: start: 20121203
  10. METFORMIN [Concomitant]
     Dates: start: 20120904, end: 20121123
  11. OMEPRAZOLE [Concomitant]
     Dates: start: 20120914, end: 20121207
  12. PERINDOPRIL ERBUMINE [Concomitant]
     Dates: start: 20120921, end: 20121214

REACTIONS (2)
  - Muscle spasms [Recovered/Resolved]
  - Dizziness [Recovered/Resolved]
